FAERS Safety Report 12373401 (Version 1)
Quarter: 2016Q2

REPORT INFORMATION
  Report Type: Spontaneous
  Country: US (occurrence: US)
  Receive Date: 20160516
  Receipt Date: 20160516
  Transmission Date: 20160815
  Serious: Yes (Death, Hospitalization, Other)
  Sender: FDA-Public Use
  Company Number: US-JNJFOC-20160512490

PATIENT
  Age: 6 Decade
  Sex: Male

DRUGS (1)
  1. IMBRUVICA [Suspect]
     Active Substance: IBRUTINIB
     Indication: CHRONIC LYMPHOCYTIC LEUKAEMIA
     Dates: start: 2015, end: 2016

REACTIONS (2)
  - Hypogammaglobulinaemia [Unknown]
  - Infection [Fatal]

NARRATIVE: CASE EVENT DATE: 2016
